FAERS Safety Report 10291011 (Version 2)
Quarter: 2014Q1

REPORT INFORMATION
  Report Type: Spontaneous
  Country: US (occurrence: None)
  Receive Date: 20120817
  Receipt Date: 20130815
  Transmission Date: 20141002
  Serious: Yes (Other)
  Sender: FDA-Public Use
  Company Number: ADR-2011-11675

PATIENT
  Sex: Female

DRUGS (5)
  1. BACLOFEN INTRATHECAL (BACLOFEN INJECTION) [Suspect]
     Indication: PAIN
  2. MORPHINE [Concomitant]
  3. FENTANYL [Concomitant]
  4. CLONIDINE [Concomitant]
  5. DROPERIDOL INTRATHECAL [Concomitant]

REACTIONS (2)
  - Drug withdrawal syndrome [None]
  - Pain [None]
